FAERS Safety Report 22208744 (Version 1)
Quarter: 2023Q2

REPORT INFORMATION
  Report Type: Other
  Country: US (occurrence: US)
  Receive Date: 20230413
  Receipt Date: 20230413
  Transmission Date: 20230722
  Serious: Yes (Death)
  Sender: FDA-Public Use
  Company Number: US-TRAVERE-2023TVT00032

PATIENT
  Age: 2 Year
  Sex: Male

DRUGS (10)
  1. CHOLBAM [Suspect]
     Active Substance: CHOLIC ACID
     Indication: Cerebrohepatorenal syndrome
     Route: 048
     Dates: start: 20220425, end: 20230122
  2. PEPCID AC [Concomitant]
     Active Substance: FAMOTIDINE
  3. CLONAZEPAM [Concomitant]
     Active Substance: CLONAZEPAM
  4. Multivitamins Plus  Iron Child [Concomitant]
  5. EPIDIOLEX [Concomitant]
     Active Substance: CANNABIDIOL
  6. LEVETIRACETAM [Concomitant]
     Active Substance: LEVETIRACETAM
  7. GABAPENTIN [Concomitant]
     Active Substance: GABAPENTIN
  8. AZITHROMYCIN [Concomitant]
     Active Substance: AZITHROMYCIN
  9. AMLODIPINE [Concomitant]
     Active Substance: AMLODIPINE BESYLATE
  10. TOPIRAMATE [Concomitant]
     Active Substance: TOPIRAMATE

REACTIONS (1)
  - Death [Fatal]

NARRATIVE: CASE EVENT DATE: 20230122
